FAERS Safety Report 5884203-5 (Version None)
Quarter: 2008Q3

REPORT INFORMATION
  Report Type: 
  Country: None (occurrence: None)
  Receive Date: 20080915
  Receipt Date: 20080910
  Transmission Date: 20090109
  Serious: Yes (Hospitalization)
  Sender: FDA-Public Use
  Company Number: DE-AVENTIS-200812396DE

PATIENT
  Age: 19 Year
  Sex: Female

DRUGS (6)
  1. LEFLUNOMIDE [Suspect]
     Route: 048
     Dates: start: 20040101, end: 20051101
  2. ADALIMUMAB [Suspect]
     Route: 058
     Dates: start: 20050301, end: 20051101
  3. FLOXACILLIN SODIUM [Suspect]
     Dates: start: 20050101, end: 20050101
  4. PREDNISOLON [Concomitant]
     Route: 048
     Dates: start: 20040101
  5. PREDNISOLON [Concomitant]
     Route: 048
     Dates: start: 20040101
  6. PREDNISOLON [Concomitant]
     Route: 048

REACTIONS (2)
  - CHOLESTASIS [None]
  - HEPATIC ENZYME INCREASED [None]
